FAERS Safety Report 6647375-0 (Version None)
Quarter: 2010Q1

REPORT INFORMATION
  Report Type: 
  Country: None (occurrence: None)
  Receive Date: 20100323
  Receipt Date: 20100310
  Transmission Date: 20100710
  Serious: Yes (Death, Other)
  Sender: FDA-Public Use
  Company Number: US-BAYER-201016408NA

PATIENT
  Sex: Male

DRUGS (11)
  1. MAGNEVIST [Suspect]
     Indication: ANGIOGRAM
     Dates: start: 20030212, end: 20030212
  2. MAGNEVIST [Suspect]
     Dosage: AS USED: 40 ML
     Dates: start: 20050607, end: 20050607
  3. OMNISCAN [Suspect]
     Indication: ANGIOGRAM
     Dates: start: 20030103, end: 20030103
  4. OMNISCAN [Suspect]
     Dates: start: 20030807, end: 20030807
  5. OMNISCAN [Suspect]
     Dates: start: 20030922, end: 20030922
  6. OMNISCAN [Suspect]
     Dates: start: 20040729, end: 20040729
  7. OMNISCAN [Suspect]
     Dosage: AS USED: 30 ML
     Dates: start: 20041201, end: 20041201
  8. OMNISCAN [Suspect]
     Dosage: AS USED: 20 ML
     Dates: start: 20050106, end: 20050106
  9. OMNISCAN [Suspect]
     Dosage: AS USED: 20 ML
     Dates: start: 20060224, end: 20060224
  10. OMNISCAN [Suspect]
     Dates: start: 20060412, end: 20060412
  11. OMNISCAN [Suspect]
     Dates: start: 20060524, end: 20060524

REACTIONS (6)
  - JOINT RANGE OF MOTION DECREASED [None]
  - MOBILITY DECREASED [None]
  - NEPHROGENIC SYSTEMIC FIBROSIS [None]
  - PAIN [None]
  - SKIN HYPERTROPHY [None]
  - SKIN INDURATION [None]
